FAERS Safety Report 17658901 (Version 1)
Quarter: 2020Q2

REPORT INFORMATION
  Report Type: Spontaneous
  Country: GR (occurrence: GR)
  Receive Date: 20200413
  Receipt Date: 20200413
  Transmission Date: 20200713
  Serious: Yes (Other)
  Sender: FDA-Public Use
  Company Number: GR-LUPIN PHARMACEUTICALS INC.-2020-01611

PATIENT
  Age: 55 Year
  Sex: Female

DRUGS (4)
  1. ZOLPIDEM [Suspect]
     Active Substance: ZOLPIDEM TARTRATE
     Indication: INSOMNIA
     Dosage: 10 MILLIGRAM, QD (BEFORE BEDTIME)
     Route: 048
  2. QUETIAPINE FUMARATE. [Suspect]
     Active Substance: QUETIAPINE FUMARATE
     Indication: PERSISTENT GENITAL AROUSAL DISORDER
     Dosage: 25 MILLIGRAM, BID
     Route: 048
  3. QUETIAPINE FUMARATE. [Suspect]
     Active Substance: QUETIAPINE FUMARATE
     Dosage: 50 MILLIGRAM, BID
     Route: 048
  4. VALERIAN [VALERIANA OFFICINALIS] [Suspect]
     Active Substance: VALERIAN
     Indication: INSOMNIA
     Dosage: UNK
     Route: 048

REACTIONS (5)
  - Sedation [Unknown]
  - Persistent genital arousal disorder [Recovered/Resolved]
  - Tension [Recovered/Resolved]
  - Anxiety [Recovered/Resolved]
  - Therapeutic response decreased [Unknown]
